FAERS Safety Report 10100612 (Version 1)
Quarter: 2014Q2

REPORT INFORMATION
  Report Type: Other
  Country: US (occurrence: US)
  Receive Date: 20140423
  Receipt Date: 20140423
  Transmission Date: 20141212
  Serious: Yes (Life-Threatening, Hospitalization)
  Sender: FDA-Public Use
  Company Number: US-BRISTOL-MYERS SQUIBB COMPANY-20650883

PATIENT
  Age: 78 Year
  Sex: Male

DRUGS (7)
  1. WARFARIN SODIUM [Suspect]
  2. AMIODARONE [Interacting]
  3. ASPIRIN [Suspect]
  4. SIMVASTATIN [Concomitant]
  5. METOPROLOL [Concomitant]
  6. TAMSULOSIN [Concomitant]
  7. FINASTERIDE [Concomitant]

REACTIONS (4)
  - Myxoedema coma [Recovering/Resolving]
  - Drug interaction [Recovering/Resolving]
  - Haemorrhage [Recovering/Resolving]
  - International normalised ratio increased [Recovering/Resolving]
